FAERS Safety Report 18441177 (Version 1)
Quarter: 2020Q4

REPORT INFORMATION
  Report Type: Spontaneous
  Country: US (occurrence: US)
  Receive Date: 20201029
  Receipt Date: 20201029
  Transmission Date: 20210114
  Serious: Yes (Other)
  Sender: FDA-Public Use
  Company Number: None

PATIENT
  Age: 24 Year
  Sex: Male

DRUGS (1)
  1. GENERIC BUPRENORPHINE/NALOXONE TABLETS [Suspect]
     Active Substance: BUPRENORPHINE HYDROCHLORIDE\NALOXONE HYDROCHLORIDE
     Route: 060
     Dates: start: 20200608

REACTIONS (5)
  - Product taste abnormal [None]
  - Drug dependence [None]
  - Retching [None]
  - Product solubility abnormal [None]
  - Drug level below therapeutic [None]

NARRATIVE: CASE EVENT DATE: 20200902
